FAERS Safety Report 5942282-0 (Version None)
Quarter: 2008Q4

REPORT INFORMATION
  Report Type: 
  Country: None (occurrence: None)
  Receive Date: 20081105
  Receipt Date: 20081023
  Transmission Date: 20090506
  Serious: Yes (Death)
  Sender: FDA-Public Use
  Company Number: JP-ELI_LILLY_AND_COMPANY-JP200810005740

PATIENT
  Age: 74 Year
  Sex: Male

DRUGS (2)
  1. OLANZAPINE [Suspect]
     Dosage: 15 MG, DAILY (1/D)
     Route: 048
     Dates: start: 20061201, end: 20070101
  2. OLANZAPINE [Suspect]
     Dosage: 17.5 MG, DAILY (1/D)
     Route: 048
     Dates: start: 20070101, end: 20070101

REACTIONS (2)
  - NEUROLEPTIC MALIGNANT SYNDROME [None]
  - SEPSIS [None]
